FAERS Safety Report 8484511-8 (Version None)
Quarter: 2012Q3

REPORT INFORMATION
  Report Type: 
  Country: None (occurrence: None)
  Receive Date: 20120703
  Receipt Date: 20120627
  Transmission Date: 20120928
  Serious: Yes (Other)
  Sender: FDA-Public Use
  Company Number: CO-PFIZER INC-2012155905

PATIENT
  Age: 16 Year
  Sex: Male

DRUGS (3)
  1. CICLOSPORIN [Concomitant]
     Indication: RENAL TRANSPLANT
     Dosage: 6 MG, 2X/DAY ORALLY
     Route: 048
     Dates: start: 20120201
  2. TACROLIMUS [Concomitant]
     Indication: RENAL TRANSPLANT
     Dosage: 1 MG AND 5 MG ONCE A DAY ORALLY
     Route: 048
     Dates: start: 20120201
  3. GENOTROPIN [Suspect]
     Indication: BODY HEIGHT BELOW NORMAL
     Dosage: UNK
     Dates: start: 20110101, end: 20111001

REACTIONS (1)
  - BLOOD CREATININE INCREASED [None]
